FAERS Safety Report 24018651 (Version 1)
Quarter: 2024Q2

REPORT INFORMATION
  Report Type: Spontaneous
  Country: PT (occurrence: PT)
  Receive Date: 20240627
  Receipt Date: 20240627
  Transmission Date: 20240715
  Serious: Yes (Death, Other)
  Sender: FDA-Public Use
  Company Number: PT-ASTELLAS-2024US018063

PATIENT
  Age: 63 Year
  Sex: Male

DRUGS (1)
  1. ENFORTUMAB VEDOTIN [Suspect]
     Active Substance: ENFORTUMAB VEDOTIN
     Indication: Transitional cell carcinoma
     Dosage: UNK UNK, CYCLIC
     Route: 065
     Dates: start: 20230808, end: 20230905

REACTIONS (3)
  - Death [Fatal]
  - Rectal haemorrhage [Unknown]
  - Infection [Unknown]
